FAERS Safety Report 8516660-X (Version None)
Quarter: 2012Q3

REPORT INFORMATION
  Report Type: 
  Country: None (occurrence: None)
  Receive Date: 20120706
  Receipt Date: 20120628
  Transmission Date: 20120928
  Serious: Yes (Disabling, Congenital Anomaly)
  Sender: FDA-Public Use
  Company Number: DAV-AE-MTX-12-50

PATIENT
  Age: 1 Day
  Sex: Female
  Weight: 2.46 kg

DRUGS (2)
  1. METHOTREXATE [Suspect]
     Indication: ABORTION INDUCED
     Dosage: 50MG/M2, INTRAMUSCULARLY
     Route: 030
  2. MISOPROSTOL [Suspect]
     Indication: ABORTION INDUCED
     Dosage: 400 MCG, ORAL
     Route: 048

REACTIONS (11)
  - HYDROCEPHALUS [None]
  - CONGENITAL ANOMALY [None]
  - MATERNAL EXPOSURE DURING PREGNANCY [None]
  - SMALL FOR DATES BABY [None]
  - CONGENITAL HAND MALFORMATION [None]
  - CONGENITAL JOINT MALFORMATION [None]
  - CONUS MEDULLARIS SYNDROME [None]
  - SYNOSTOSIS [None]
  - HIP DYSPLASIA [None]
  - OLIGOHYDRAMNIOS [None]
  - CONGENITAL JAW MALFORMATION [None]
